FAERS Safety Report 8131422-3 (Version None)
Quarter: 2012Q1

REPORT INFORMATION
  Report Type: 
  Country: None (occurrence: None)
  Receive Date: 20120207
  Receipt Date: 20120127
  Transmission Date: 20120608
  Serious: Yes (Hospitalization, Other)
  Sender: FDA-Public Use
  Company Number: 2012HGS-003102

PATIENT
  Age: 59 Year
  Sex: Female
  Weight: 122.4712 kg

DRUGS (38)
  1. BACTRIM DS (BACTRIM) (SULFAMETHOXAZOLE, TRIMETHOPRIM) [Concomitant]
  2. PREDNISONE TAB [Concomitant]
  3. CELLCEPT [Concomitant]
  4. SYNTHROID [Concomitant]
  5. ZOLOFT (SERTERALINE HYDROCHLORIDE) [Concomitant]
  6. VITAMIN B12 [Concomitant]
  7. BUTRANS PATCH (BUPRENORPHINE) [Concomitant]
  8. LISINOPRIL [Concomitant]
  9. DILAUDID [Concomitant]
  10. VENTOLIN INH (SALBUTAMOL) [Concomitant]
  11. NORCO (VICODIN) (PARACETAMOL, HYDROCODONE BITARTRATE) [Concomitant]
  12. PROTONIX (PANTOPRAZOLE SODIUM SESQUIHYDRATE) [Concomitant]
  13. ZOCOR [Concomitant]
  14. ALBUTEROL [Concomitant]
  15. CALCIUM CARBONATE [Concomitant]
  16. LUMIGAN [Concomitant]
  17. SPIRONOLACTONE [Concomitant]
  18. FORTEO [Concomitant]
  19. TRAZODONE HCL [Concomitant]
  20. BETTA SQ (EXENATIDE) [Concomitant]
  21. NORVASC [Concomitant]
  22. SINGULAIR [Concomitant]
  23. SPIRIVA [Concomitant]
  24. BENLYSTA [Suspect]
     Indication: SYSTEMIC LUPUS ERYTHEMATOSUS
     Dosage: 10 MG/KG, 1 IN 28 D, INTRAVENOUS
     Route: 042
     Dates: start: 20110705
  25. METOPROLOL TARTRATE [Concomitant]
  26. FOLIC ACID [Concomitant]
  27. NITROGLYCERIN PATCH (GLYCERYL TRINITRATE) [Concomitant]
  28. FLOVENT [Concomitant]
  29. GABAPENTIN [Concomitant]
  30. SLOW MAG (MAGNESIUM CHLORIDE ANHYDROUS) (MAGNESIUM CHLORIDE ANHYDROUS) [Concomitant]
  31. COUMADIN [Concomitant]
  32. CELEBREX [Concomitant]
  33. JANUVIA [Concomitant]
  34. LASIX [Concomitant]
  35. VALTREX [Concomitant]
  36. VITAMIN D [Concomitant]
  37. XANAX [Concomitant]
  38. LIDODERM [Concomitant]

REACTIONS (2)
  - PNEUMONIA FUNGAL [None]
  - PNEUMONIA BACTERIAL [None]
